FAERS Safety Report 18110974 (Version 1)
Quarter: 2020Q3

REPORT INFORMATION
  Report Type: Spontaneous
  Country: DE (occurrence: DE)
  Receive Date: 20200804
  Receipt Date: 20200804
  Transmission Date: 20201103
  Serious: Yes (Other)
  Sender: FDA-Public Use
  Company Number: NVSC2020DE216820

PATIENT
  Age: 37 Year
  Sex: Male

DRUGS (5)
  1. CYCLOPHOSPHAMIDE. [Suspect]
     Active Substance: CYCLOPHOSPHAMIDE
     Indication: CHRONIC GRAFT VERSUS HOST DISEASE
     Dosage: UNK
     Route: 065
  2. MYCOPHENOLATE MOFETIL. [Suspect]
     Active Substance: MYCOPHENOLATE MOFETIL
     Indication: CHRONIC GRAFT VERSUS HOST DISEASE
     Dosage: UNK
     Route: 065
  3. PREDNISOLONE. [Suspect]
     Active Substance: PREDNISOLONE
     Indication: CHRONIC GRAFT VERSUS HOST DISEASE
     Dosage: 0.47 MG/KG
     Route: 065
  4. METHOTREXATE. [Suspect]
     Active Substance: METHOTREXATE
     Indication: CHRONIC GRAFT VERSUS HOST DISEASE
     Dosage: UNK
     Route: 065
  5. TACROLIMUS. [Suspect]
     Active Substance: TACROLIMUS
     Indication: CHRONIC GRAFT VERSUS HOST DISEASE
     Dosage: UNK
     Route: 065

REACTIONS (3)
  - Disease progression [Unknown]
  - Chronic graft versus host disease [Unknown]
  - Product use in unapproved indication [Unknown]
